FAERS Safety Report 19903403 (Version 1)
Quarter: 2021Q4

REPORT INFORMATION
  Report Type: Report from Study
  Country: US (occurrence: US)
  Receive Date: 20211001
  Receipt Date: 20211001
  Transmission Date: 20220303
  Serious: Yes (Hospitalization)
  Sender: FDA-Public Use
  Company Number: US-ROCHE-2923368

PATIENT
  Age: 70 Year
  Sex: Female
  Weight: 97.16 kg

DRUGS (1)
  1. TRASTUZUMAB [Suspect]
     Active Substance: TRASTUZUMAB
     Indication: Papillary serous endometrial carcinoma
     Dosage: LAST DOSE RECEIVED ON 18/AUG/2021
     Route: 041
     Dates: start: 20160829, end: 20210818

REACTIONS (1)
  - COVID-19 [Unknown]

NARRATIVE: CASE EVENT DATE: 20210825
